FAERS Safety Report 5859563-1 (Version None)
Quarter: 2008Q3

REPORT INFORMATION
  Report Type: 
  Country: None (occurrence: None)
  Receive Date: 20080827
  Receipt Date: 20080820
  Transmission Date: 20090109
  Serious: Yes (Hospitalization)
  Sender: FDA-Public Use
  Company Number: A0744753A

PATIENT
  Age: 54 Year
  Sex: Male

DRUGS (1)
  1. ARIXTRA [Suspect]
     Dosage: 2.5MG SEE DOSAGE TEXT
     Route: 058
     Dates: start: 20080609, end: 20080617

REACTIONS (2)
  - THROMBOCYTOPENIA [None]
  - THROMBOSIS [None]
